FAERS Safety Report 10431053 (Version 1)
Quarter: 2014Q1

REPORT INFORMATION
  Report Type: Spontaneous
  Country: US (occurrence: None)
  Receive Date: 20130507
  Receipt Date: 20130507
  Transmission Date: 20141002
  Serious: No
  Sender: FDA-Public Use
  Company Number: PHEH2013US004381

PATIENT
  Age: 6 Year
  Sex: Male

DRUGS (4)
  1. AFINITOR (RAD) UNKNOWN [Suspect]
     Indication: TUBEROUS SCLEROSIS
     Route: 048
     Dates: start: 20130216, end: 20130219
  2. VIGABATRIN [Concomitant]
  3. DILANTIN (PHENYTOIN SODIUM) [Concomitant]
  4. TAURINE (TAURINE) [Concomitant]

REACTIONS (1)
  - Rash [None]
